FAERS Safety Report 23416166 (Version 1)
Quarter: 2024Q1

REPORT INFORMATION
  Report Type: Spontaneous
  Country: CN (occurrence: CN)
  Receive Date: 20240118
  Receipt Date: 20240118
  Transmission Date: 20240409
  Serious: Yes (Death)
  Sender: FDA-Public Use
  Company Number: CN-PFIZER INC-PV202400006140

PATIENT
  Age: 49 Year
  Sex: Male

DRUGS (8)
  1. EPIRUBICIN HYDROCHLORIDE [Suspect]
     Active Substance: EPIRUBICIN HYDROCHLORIDE
     Indication: Thymoma
     Dosage: 130 MG
     Dates: start: 20220512, end: 20220730
  2. EPIRUBICIN HYDROCHLORIDE [Suspect]
     Active Substance: EPIRUBICIN HYDROCHLORIDE
     Indication: Metastases to lung
     Dosage: 130 MG
     Dates: start: 20220831
  3. SINTILIMAB [Suspect]
     Active Substance: SINTILIMAB
     Indication: Thymoma
     Dosage: 200 MG, EVERY 3 WEEKS
     Route: 042
     Dates: start: 20220831
  4. SINTILIMAB [Suspect]
     Active Substance: SINTILIMAB
     Indication: Metastases to lung
  5. CYCLOPHOSPHAMIDE [Suspect]
     Active Substance: CYCLOPHOSPHAMIDE
     Indication: Thymoma
     Dosage: 890 MG
     Dates: start: 20220512, end: 20220730
  6. CYCLOPHOSPHAMIDE [Suspect]
     Active Substance: CYCLOPHOSPHAMIDE
     Indication: Metastases to lung
     Dosage: 890 MG
     Dates: start: 20220831
  7. CISPLATIN [Suspect]
     Active Substance: CISPLATIN
     Indication: Thymoma
     Dosage: 80 MG
     Dates: start: 20220512, end: 20220730
  8. CISPLATIN [Suspect]
     Active Substance: CISPLATIN
     Indication: Metastases to lung
     Dosage: 80 MG
     Dates: start: 20220831

REACTIONS (2)
  - Immune-mediated myocarditis [Fatal]
  - Off label use [Unknown]

NARRATIVE: CASE EVENT DATE: 20220831
